FAERS Safety Report 7225728-X (Version None)
Quarter: 2011Q1

REPORT INFORMATION
  Report Type: 
  Country: None (occurrence: None)
  Receive Date: 20110113
  Receipt Date: 20101211
  Transmission Date: 20110831
  Serious: Yes (Other)
  Sender: FDA-Public Use
  Company Number: US-NOVEN-10US001432

PATIENT
  Sex: Male

DRUGS (2)
  1. UNKNOWN [Concomitant]
  2. FENTANYL-100 [Suspect]
     Indication: DRUG ABUSE
     Dosage: UNK
     Route: 048

REACTIONS (2)
  - DRUG DIVERSION [None]
  - DRUG ABUSE [None]
